FAERS Safety Report 10842167 (Version 1)
Quarter: 2015Q1

REPORT INFORMATION
  Report Type: Spontaneous
  Country: TW (occurrence: TW)
  Receive Date: 20150220
  Receipt Date: 20150220
  Transmission Date: 20150721
  Serious: Yes (Death)
  Sender: FDA-Public Use
  Company Number: TW-CIPLA LTD.-2015TW01173

PATIENT

DRUGS (2)
  1. GEMCITABINE [Suspect]
     Active Substance: GEMCITABINE\GEMCITABINE HYDROCHLORIDE
     Indication: BILIARY CANCER METASTATIC
     Dosage: 800 MG/M2,  FIXED-DOSE RATE INFUSION 10 MG/M2/MIN EVERY 2 WEEKS
     Route: 042
  2. OXALIPLATIN. [Suspect]
     Active Substance: OXALIPLATIN
     Indication: BILIARY CANCER METASTATIC
     Dosage: 85 MG/M2,  FIXED-DOSE RATE INFUSION 10 MG/M2/MIN EVERY 2 WEEKS
     Route: 042

REACTIONS (1)
  - Death [Fatal]
